FAERS Safety Report 8229204-7 (Version None)
Quarter: 2012Q1

REPORT INFORMATION
  Report Type: 
  Country: None (occurrence: None)
  Receive Date: 20120322
  Receipt Date: 20120316
  Transmission Date: 20120608
  Serious: Yes (Death, Hospitalization)
  Sender: FDA-Public Use
  Company Number: FR-BRISTOL-MYERS SQUIBB COMPANY-16465247

PATIENT
  Age: 53 Year
  Sex: Male

DRUGS (5)
  1. PROPRANOLOL [Concomitant]
     Dosage: AVLOCARDYL SR 160 MG, EXTENDED-RELEASE CAPSULE
  2. PANTOPRAZOLE SODIUM [Concomitant]
     Dosage: INIPOMP 40 MG, GASTRO-RESISTANT TABLET
  3. ABACAVIR SULFATE/LAMIVUDINE [Suspect]
     Indication: HIV INFECTION
     Dosage: 1DF=1 TABLET
     Route: 048
     Dates: start: 20090101, end: 20120131
  4. VIDEX EC [Suspect]
     Indication: HIV INFECTION
     Dosage: 1DF=1 CAPSULE
     Route: 048
     Dates: start: 20010101, end: 20120131
  5. ALDACTONE [Concomitant]
     Dosage: ALDACTONE 25 MG, FILM-COATED SCORED TABLET

REACTIONS (3)
  - LACTIC ACIDOSIS [None]
  - SEPSIS [None]
  - MULTI-ORGAN FAILURE [None]
